FAERS Safety Report 24916398 (Version 1)
Quarter: 2025Q1

REPORT INFORMATION
  Report Type: Spontaneous
  Country: US (occurrence: None)
  Receive Date: 20250131
  Receipt Date: 20250131
  Transmission Date: 20250409
  Serious: Yes (Disabling)
  Sender: FDA-CTU
  Company Number: None

PATIENT
  Age: 50 Year
  Sex: Male
  Weight: 123.75 kg

DRUGS (4)
  1. LEVAQUIN [Suspect]
     Active Substance: LEVOFLOXACIN
     Indication: Urinary tract infection
     Dosage: OTHER QUANTITY : 20 TABLET(S);?FREQUENCY : TWICE A DAY;?
     Route: 048
     Dates: start: 20241103, end: 20241113
  2. Motoporol [Concomitant]
  3. MOUNJARO [Concomitant]
     Active Substance: TIRZEPATIDE
  4. METFORMIN [Concomitant]
     Active Substance: METFORMIN HYDROCHLORIDE

REACTIONS (5)
  - Anxiety [None]
  - Depression [None]
  - Neuropathy peripheral [None]
  - Arthralgia [None]
  - Palpitations [None]

NARRATIVE: CASE EVENT DATE: 20241113
